FAERS Safety Report 25428645 (Version 1)
Quarter: 2025Q2

REPORT INFORMATION
  Report Type: Spontaneous
  Country: PT (occurrence: PT)
  Receive Date: 20250612
  Receipt Date: 20250612
  Transmission Date: 20250716
  Serious: Yes (Other)
  Sender: MYLAN
  Company Number: PT-MYLANLABS-2025M1048362

PATIENT
  Age: 68 Year
  Sex: Male

DRUGS (6)
  1. ATORVASTATIN [Suspect]
     Active Substance: ATORVASTATIN
     Indication: Product used for unknown indication
  2. METFORMIN [Concomitant]
     Active Substance: METFORMIN HYDROCHLORIDE
  3. DAPAGLIFLOZIN [Concomitant]
     Active Substance: DAPAGLIFLOZIN
  4. PERINDOPRIL [Concomitant]
     Active Substance: PERINDOPRIL
  5. INDAPAMIDE [Concomitant]
     Active Substance: INDAPAMIDE
  6. ALPRAZOLAM [Concomitant]
     Active Substance: ALPRAZOLAM

REACTIONS (2)
  - Cachexia [Recovering/Resolving]
  - Immune-mediated myositis [Recovering/Resolving]
